FAERS Safety Report 9902997 (Version 3)
Quarter: 2014Q3

REPORT INFORMATION
  Report Type: Report from Study
  Country: IT (occurrence: IT)
  Receive Date: 20140217
  Receipt Date: 20140801
  Transmission Date: 20150326
  Serious: Yes (Hospitalization, Other)
  Sender: FDA-Public Use
  Company Number: PHHY2014IT015170

PATIENT
  Age: 62 Year
  Sex: Female

DRUGS (5)
  1. CERTICAN [Suspect]
     Active Substance: EVEROLIMUS
     Dosage: 1.25 MG (0.75 PLUS 0.50)
     Route: 048
  2. CERTICAN [Suspect]
     Active Substance: EVEROLIMUS
     Dosage: 0.5 MG, BID
  3. DELTACORTENE [Concomitant]
     Active Substance: PREDNISONE
     Dosage: 2.5 MG, UNK
     Dates: start: 20100701
  4. CERTICAN [Suspect]
     Active Substance: EVEROLIMUS
     Indication: PROPHYLAXIS AGAINST TRANSPLANT REJECTION
     Dosage: 1.5 MG (0.75 PLUS 0.75)
     Route: 048
     Dates: start: 20090508
  5. SANDIMMUN NEORAL [Concomitant]
     Active Substance: CYCLOSPORINE
     Indication: PROPHYLAXIS AGAINST TRANSPLANT REJECTION
     Dosage: 75 MG, UNK
     Dates: start: 20111117

REACTIONS (8)
  - Pyrexia [Recovered/Resolved]
  - Haemodynamic instability [Recovered/Resolved]
  - Electrocardiogram repolarisation abnormality [Recovered/Resolved]
  - Viral infection [Unknown]
  - Renal failure chronic [Recovered/Resolved]
  - Gastroenteritis [Recovered/Resolved]
  - Sinus arrhythmia [Recovered/Resolved]
  - Anaemia [Recovered/Resolved]

NARRATIVE: CASE EVENT DATE: 20120501
